FAERS Safety Report 5826179-2 (Version None)
Quarter: 2008Q3

REPORT INFORMATION
  Report Type: 
  Country: None (occurrence: None)
  Receive Date: 20080723
  Receipt Date: 20080616
  Transmission Date: 20090109
  Serious: Yes (Hospitalization)
  Sender: FDA-Public Use
  Company Number: 1000000172

PATIENT
  Age: 85 Year
  Sex: Female

DRUGS (7)
  1. MEMANTINE HCL [Suspect]
     Dosage: 20 MG (10 MG, 2 IN 1 D), ORAL
     Route: 048
     Dates: end: 20080509
  2. TENORMIN [Suspect]
     Dosage: 50 MG (50 MG, 1 IN 1 D), ORAL
     Route: 048
     Dates: end: 20080509
  3. TRIACTEC [Concomitant]
  4. MODOPAR [Concomitant]
  5. FOLIC ACID [Concomitant]
  6. TAHOR [Concomitant]
  7. ARIMIDEX [Concomitant]

REACTIONS (6)
  - BUNDLE BRANCH BLOCK LEFT [None]
  - CONFUSIONAL STATE [None]
  - LOSS OF CONSCIOUSNESS [None]
  - MALAISE [None]
  - ORTHOSTATIC HYPOTENSION [None]
  - URINARY INCONTINENCE [None]
